FAERS Safety Report 5397757-2 (Version None)
Quarter: 2007Q3

REPORT INFORMATION
  Report Type: 
  Country: None (occurrence: None)
  Receive Date: 20070726
  Receipt Date: 20070720
  Transmission Date: 20080115
  Serious: Yes (Other)
  Sender: FDA-Public Use
  Company Number: A0666121A

PATIENT
  Age: 70 Year
  Sex: Male

DRUGS (6)
  1. COREG [Suspect]
     Indication: ATRIAL FIBRILLATION
     Dosage: 25MG TWICE PER DAY
     Route: 048
     Dates: start: 20050101, end: 20070627
  2. COREG CR [Suspect]
     Indication: ATRIAL FIBRILLATION
     Dosage: 80MG PER DAY
     Route: 048
     Dates: start: 20070628
  3. NORVASC [Concomitant]
  4. MONOPRIL [Concomitant]
  5. TAMBOCOR [Concomitant]
  6. POTASSIUM CHLORIDE [Concomitant]

REACTIONS (6)
  - BLOOD PRESSURE DECREASED [None]
  - DIARRHOEA [None]
  - HEART RATE DECREASED [None]
  - LOSS OF CONSCIOUSNESS [None]
  - STOMACH DISCOMFORT [None]
  - SYNCOPE [None]
